FAERS Safety Report 5349295-0 (Version None)
Quarter: 2007Q2

REPORT INFORMATION
  Report Type: 
  Country: None (occurrence: None)
  Receive Date: 20070607
  Receipt Date: 20070531
  Transmission Date: 20071010
  Serious: Yes (Hospitalization)
  Sender: FDA-Public Use
  Company Number: B0457528A

PATIENT
  Age: 60 Year
  Sex: Male

DRUGS (5)
  1. AUGMENTIN '125' [Suspect]
     Indication: URINARY TRACT INFECTION
     Route: 048
  2. CIFLOX [Suspect]
     Indication: URINARY TRACT INFECTION
     Dosage: 2UNIT PER DAY
     Route: 048
     Dates: end: 20061224
  3. PREVISCAN [Concomitant]
     Route: 048
  4. LIORESAL [Concomitant]
     Route: 065
  5. IMOVANE [Concomitant]
     Route: 065

REACTIONS (5)
  - ABDOMINAL PAIN [None]
  - CLOSTRIDIUM DIFFICILE COLITIS [None]
  - DIARRHOEA [None]
  - LARGE INTESTINAL ULCER [None]
  - PYREXIA [None]
